FAERS Safety Report 7365589-1 (Version None)
Quarter: 2011Q1

REPORT INFORMATION
  Report Type: 
  Country: None (occurrence: None)
  Receive Date: 20110316
  Receipt Date: 20110316
  Transmission Date: 20110831
  Serious: Yes (Other)
  Sender: FDA-Public Use
  Company Number: None

PATIENT
  Age: 12 Year
  Sex: Female
  Weight: 89.8122 kg

DRUGS (3)
  1. METADATE CD [Concomitant]
  2. SEROQUEL [Concomitant]
  3. VENLAFAXINE [Suspect]
     Indication: GENERALISED ANXIETY DISORDER
     Dosage: 75MG ONE PO DAILY
     Route: 048
     Dates: start: 20101111, end: 20101119

REACTIONS (7)
  - PARANOIA [None]
  - DEPRESSION [None]
  - MOOD SWINGS [None]
  - ANGER [None]
  - CRYING [None]
  - AGITATION [None]
  - PRODUCT SUBSTITUTION ISSUE [None]
